FAERS Safety Report 7640892-6 (Version None)
Quarter: 2011Q3

REPORT INFORMATION
  Report Type: 
  Country: None (occurrence: None)
  Receive Date: 20110728
  Receipt Date: 20110728
  Transmission Date: 20111222
  Serious: Yes (Hospitalization)
  Sender: FDA-Public Use
  Company Number: None

PATIENT
  Age: 42 Year
  Sex: Female
  Weight: 62.7 kg

DRUGS (1)
  1. ZOSYN [Suspect]
     Indication: PROPHYLAXIS
     Dosage: 3.375 G
     Route: 042

REACTIONS (1)
  - PRURITUS [None]
